FAERS Safety Report 8567540-5 (Version None)
Quarter: 2012Q3

REPORT INFORMATION
  Report Type: 
  Country: None (occurrence: None)
  Receive Date: 20120803
  Receipt Date: 20120803
  Transmission Date: 20120928
  Serious: Yes (Death)
  Sender: FDA-Public Use
  Company Number: PHHO2011AU06659

PATIENT
  Sex: Male

DRUGS (4)
  1. AMOXICILLIN [Concomitant]
     Indication: PROPHYLAXIS
     Dosage: UNK
     Dates: start: 20101001
  2. SUNITINIB MALATE [Suspect]
     Indication: RENAL CELL CARCINOMA
     Dosage: UNK
     Dates: start: 20100217, end: 20110407
  3. AFINITOR [Suspect]
     Indication: RENAL CELL CARCINOMA
     Dosage: UNK
     Route: 048
     Dates: start: 20110128, end: 20110303
  4. RAMIPRIL [Concomitant]
     Dosage: UNK
     Dates: start: 20100101

REACTIONS (3)
  - NEOPLASM MALIGNANT [None]
  - CARDIAC FAILURE CONGESTIVE [None]
  - NEOPLASM PROGRESSION [None]
